FAERS Safety Report 6612896-3 (Version None)
Quarter: 2010Q1

REPORT INFORMATION
  Report Type: 
  Country: None (occurrence: None)
  Receive Date: 20100303
  Receipt Date: 20100217
  Transmission Date: 20100710
  Serious: Yes (Other)
  Sender: FDA-Public Use
  Company Number: GB-MYLANLABS-2010S1002694

PATIENT
  Age: 63 Year
  Sex: Male

DRUGS (5)
  1. SELEGILINE HCL [Suspect]
     Indication: PARKINSON'S DISEASE
  2. PRAMIPEXOLE DIHYDROCHLORIDE [Interacting]
     Indication: PARKINSON'S DISEASE
     Route: 048
  3. PRAMIPEXOLE DIHYDROCHLORIDE [Interacting]
     Route: 048
  4. PRAMIPEXOLE DIHYDROCHLORIDE [Interacting]
  5. LEVODOPA [Interacting]
     Indication: PARKINSON'S DISEASE

REACTIONS (4)
  - DOPAMINE DYSREGULATION SYNDROME [None]
  - DRUG INTERACTION [None]
  - GAMBLING [None]
  - INCORRECT DRUG ADMINISTRATION RATE [None]
